FAERS Safety Report 15809089 (Version 2)
Quarter: 2019Q1

REPORT INFORMATION
  Report Type: Report from Study
  Country: US (occurrence: US)
  Receive Date: 20190110
  Receipt Date: 20190130
  Transmission Date: 20190417
  Serious: Yes (Hospitalization)
  Sender: FDA-Public Use
  Company Number: US-GILEAD-2019-0383855

PATIENT
  Age: 65 Year
  Sex: Female
  Weight: 87.95 kg

DRUGS (9)
  1. SOFOSBUVIR W/VELPATASVIR [Suspect]
     Active Substance: SOFOSBUVIR\VELPATASVIR
     Indication: CHRONIC HEPATITIS C
     Dosage: 400 MG, QD
     Route: 048
     Dates: start: 20170208, end: 20170726
  2. TRIAMCINOLONA ACETONIDO [Concomitant]
  3. INSULIN [Concomitant]
     Active Substance: INSULIN NOS
  4. NORVASC [Concomitant]
     Active Substance: AMLODIPINE BESYLATE
  5. PROVENTIL HFA [SALBUTAMOL SULFATE] [Concomitant]
  6. ENTECAVIR. [Concomitant]
     Active Substance: ENTECAVIR
  7. MAGNESIUM OXIDE. [Concomitant]
     Active Substance: MAGNESIUM OXIDE
  8. TACROLIMUS. [Concomitant]
     Active Substance: TACROLIMUS
  9. ASPIRIN (E.C.) [Concomitant]
     Active Substance: ASPIRIN

REACTIONS (2)
  - Influenza like illness [Recovered/Resolved]
  - Pyrexia [Recovered/Resolved]

NARRATIVE: CASE EVENT DATE: 20170813
